FAERS Safety Report 19036356 (Version 1)
Quarter: 2021Q1

REPORT INFORMATION
  Report Type: Spontaneous
  Country: US (occurrence: US)
  Receive Date: 20210319
  Receipt Date: 20210319
  Transmission Date: 20210420
  Serious: No
  Sender: FDA-Public Use
  Company Number: None

PATIENT
  Age: 45 Year
  Sex: Male
  Weight: 72.9 kg

DRUGS (1)
  1. OXYCODONE 5 MG [Suspect]
     Active Substance: OXYCODONE

REACTIONS (6)
  - Product complaint [None]
  - Inadequate analgesia [None]
  - Product substitution issue [None]
  - Drug ineffective [None]
  - Nausea [None]
  - Gastric disorder [None]
